FAERS Safety Report 10144316 (Version 2)
Quarter: 2014Q2

REPORT INFORMATION
  Report Type: Report from Study
  Country: US (occurrence: US)
  Receive Date: 20140430
  Receipt Date: 20140430
  Transmission Date: 20141212
  Serious: Yes (Hospitalization, Other)
  Sender: FDA-Public Use
  Company Number: US-BRISTOL-MYERS SQUIBB COMPANY-20602181

PATIENT
  Age: 64 Year
  Sex: Female
  Weight: 79.36 kg

DRUGS (6)
  1. ABATACEPT SUBQ INJECTION 125MG/ML [Suspect]
     Indication: RHEUMATOID ARTHRITIS
     Dosage: 10MAR14,17MAR14,24MAR14,31MAR14?LAST DOSE ON 14APR14.
     Route: 058
  2. METHOTREXATE TABS [Suspect]
     Dosage: METHOTREXATE TABS
     Dates: start: 201401
  3. PREDNISONE [Suspect]
  4. LISINOPRIL [Concomitant]
     Dosage: AT MORNING
  5. TOPROL XL [Concomitant]
     Dosage: AT AFTERNOON
  6. TYLENOL [Concomitant]
     Dosage: 2 PILLS

REACTIONS (13)
  - Pneumonia bacterial [Unknown]
  - Influenza [Recovered/Resolved]
  - Bundle branch block right [Unknown]
  - Corneal dystrophy [Unknown]
  - Sinusitis [Unknown]
  - Weight increased [Unknown]
  - Rash [Unknown]
  - Joint swelling [Unknown]
  - Injection site haemorrhage [Unknown]
  - Product quality issue [Unknown]
  - Oral candidiasis [Unknown]
  - Injury associated with device [Unknown]
  - Drug administration error [Unknown]
